FAERS Safety Report 15139469 (Version 2)
Quarter: 2019Q1

REPORT INFORMATION
  Report Type: Spontaneous
  Country: DE (occurrence: DE)
  Receive Date: 20180713
  Receipt Date: 20190204
  Transmission Date: 20190417
  Serious: Yes (Death, Hospitalization, Other)
  Sender: FDA-Public Use
  Company Number: PHHY2012DE143982

PATIENT
  Age: 69 Year
  Sex: Female
  Weight: 64 kg

DRUGS (6)
  1. PACLITAXEL. [Suspect]
     Active Substance: PACLITAXEL
     Indication: OVARIAN CANCER
     Dosage: 200 MG, UNK (LAST DOSE PRIOR TO EVENT 14 SEP 2012)
     Route: 042
  2. FORTECORTIN [Suspect]
     Active Substance: DEXAMETHASONE
     Indication: OVARIAN CANCER
     Dosage: 16 MG, UNK (LAST DOSE PRIOR TO EVENT 14 SEP 2012)
     Route: 042
  3. BEVACIZUMAB. [Suspect]
     Active Substance: BEVACIZUMAB
     Indication: OVARIAN CANCER
     Dosage: 950 MG, UNK (LAST DOSE PRIOR TO EVENT 14 SEP 2012)
     Route: 042
  4. CARBOPLATIN. [Suspect]
     Active Substance: CARBOPLATIN
     Indication: OVARIAN CANCER
     Dosage: 400 MG, UNK (LAST DOSE PRIOR TO EVENT 14 SEP 2012)
     Route: 042
  5. FORTECORTIN [Suspect]
     Active Substance: DEXAMETHASONE
     Dosage: 16 MG, UNK (LAST DOSE PRIOR TO EVENT 16 SEP 2012)
     Route: 042
  6. ANTRA [Suspect]
     Active Substance: OMEPRAZOLE
     Indication: OVARIAN CANCER
     Dosage: UNK (LAST DOSE PRIOR TO EVENT 14 SEP 2012)
     Route: 048

REACTIONS (10)
  - Thrombosis [Recovered/Resolved]
  - Focal dyscognitive seizures [Unknown]
  - Renal failure [Unknown]
  - Death [Fatal]
  - Joint swelling [Recovered/Resolved]
  - Arthralgia [Recovered/Resolved]
  - Pain [Unknown]
  - Parkinson^s disease [Unknown]
  - Bladder dysfunction [Unknown]
  - Vomiting [Unknown]

NARRATIVE: CASE EVENT DATE: 20120927
